FAERS Safety Report 8530907-5 (Version None)
Quarter: 2012Q3

REPORT INFORMATION
  Report Type: 
  Country: None (occurrence: None)
  Receive Date: 20120723
  Receipt Date: 20120709
  Transmission Date: 20120928
  Serious: Yes (Other)
  Sender: FDA-Public Use
  Company Number: US-ENDO PHARMACEUTICALS INC.-HCDA20120051

PATIENT
  Sex: Female

DRUGS (1)
  1. HYDROCODONE/ACETAMINOPHEN 10MG/325MG [Suspect]
     Indication: PAIN
     Dosage: 10MG/325MG
     Route: 048
     Dates: start: 20120320, end: 20120322

REACTIONS (5)
  - BLADDER PAIN [None]
  - CONSTIPATION [None]
  - URINARY INCONTINENCE [None]
  - OEDEMA PERIPHERAL [None]
  - URINARY RETENTION [None]
